FAERS Safety Report 4784322-0 (Version None)
Quarter: 2005Q3

REPORT INFORMATION
  Report Type: 
  Country: None (occurrence: None)
  Receive Date: 20050930
  Receipt Date: 20050928
  Transmission Date: 20060218
  Serious: Yes (Other)
  Sender: FDA-Public Use
  Company Number: JP-JNJFOC-20050906209

PATIENT
  Age: 52 Year
  Sex: Male

DRUGS (2)
  1. TAVANIC [Suspect]
     Indication: LUNG INFECTION
     Route: 048
  2. CEFTRIAXONE [Suspect]
     Indication: LUNG INFECTION
     Route: 065

REACTIONS (1)
  - BLOOD TRIGLYCERIDES INCREASED [None]
